FAERS Safety Report 6858338-4 (Version None)
Quarter: 2010Q3

REPORT INFORMATION
  Report Type: 
  Country: None (occurrence: None)
  Receive Date: 20100719
  Receipt Date: 20080206
  Transmission Date: 20110219
  Serious: No
  Sender: FDA-Public Use
  Company Number: US-PFIZER INC-2008013877

PATIENT
  Sex: Female
  Weight: 62.727 kg

DRUGS (2)
  1. CHANTIX [Suspect]
     Indication: SMOKING CESSATION THERAPY
     Dates: start: 20070401, end: 20070401
  2. LISINOPRIL [Concomitant]
     Indication: HYPERTENSION
     Dates: start: 20070401

REACTIONS (2)
  - ABNORMAL DREAMS [None]
  - NIGHTMARE [None]
